FAERS Safety Report 15139176 (Version 1)
Quarter: 2018Q3

REPORT INFORMATION
  Report Type: Spontaneous
  Country: US (occurrence: US)
  Receive Date: 20180713
  Receipt Date: 20180713
  Transmission Date: 20181010
  Serious: Yes (Hospitalization)
  Sender: FDA-Public Use
  Company Number: US-PFIZER INC-2018276177

PATIENT
  Age: 81 Year
  Sex: Male
  Weight: 95.71 kg

DRUGS (1)
  1. LYRICA [Suspect]
     Active Substance: PREGABALIN
     Indication: DIABETIC NEUROPATHY
     Dosage: 100 MG (RED CAPSULES), 2X/DAY
     Route: 048
     Dates: start: 201805

REACTIONS (4)
  - Incontinence [Unknown]
  - Urinary retention [Unknown]
  - Peripheral swelling [Unknown]
  - Loss of personal independence in daily activities [Unknown]
